FAERS Safety Report 9826148 (Version 1)
Quarter: 2014Q1

REPORT INFORMATION
  Report Type: Spontaneous
  Country: FR (occurrence: FR)
  Receive Date: 20140117
  Receipt Date: 20140117
  Transmission Date: 20141002
  Serious: Yes (Death)
  Sender: FDA-Public Use
  Company Number: FR-009507513-1401FRA005986

PATIENT
  Age: 60 Year
  Sex: Male

DRUGS (1)
  1. CANCIDAS [Suspect]
     Indication: ASPERGILLUS INFECTION
     Dosage: 70 MG, QD
     Route: 042
     Dates: start: 20130112, end: 20130114

REACTIONS (2)
  - Death [Fatal]
  - Off label use [Unknown]
